FAERS Safety Report 18863337 (Version 1)
Quarter: 2021Q1

REPORT INFORMATION
  Report Type: Spontaneous
  Country: FR (occurrence: FR)
  Receive Date: 20210208
  Receipt Date: 20210208
  Transmission Date: 20210420
  Serious: Yes (Hospitalization)
  Sender: FDA-Public Use
  Company Number: FR-GLAXOSMITHKLINE-FR2021024437

PATIENT
  Age: 31 Year
  Sex: Female
  Weight: 73 kg

DRUGS (6)
  1. ACICLOVIR [Suspect]
     Active Substance: ACYCLOVIR
     Indication: INFECTION PROPHYLAXIS
     Dosage: UNK
     Route: 065
     Dates: start: 20201207
  2. ORACILLINE [Suspect]
     Active Substance: PENICILLIN V
     Indication: INFECTION
     Dosage: 2 IU, QD
     Route: 065
     Dates: start: 20201228, end: 20201230
  3. VANCOMYCINE MYLAN [Suspect]
     Active Substance: VANCOMYCIN
     Indication: INFECTION
     Dosage: UNK
     Route: 041
     Dates: start: 20201221, end: 20201224
  4. FLUDARA [Suspect]
     Active Substance: FLUDARABINE PHOSPHATE
     Indication: ACUTE MYELOID LEUKAEMIA
     Dosage: UNK
     Route: 041
     Dates: start: 20201204, end: 20201208
  5. BUSULFAN. [Suspect]
     Active Substance: BUSULFAN
     Indication: ACUTE MYELOID LEUKAEMIA
     Dosage: UNK
     Route: 041
     Dates: start: 20201204, end: 20201207
  6. PIPERACILLIN AND TAZOBACTAM [Suspect]
     Active Substance: PIPERACILLIN SODIUM\TAZOBACTAM SODIUM
     Indication: INFECTION
     Dosage: 1 G, QID
     Route: 041
     Dates: start: 20201210, end: 20201222

REACTIONS (2)
  - Lung disorder [Not Recovered/Not Resolved]
  - Eosinophilia [Not Recovered/Not Resolved]

NARRATIVE: CASE EVENT DATE: 20201222
